FAERS Safety Report 7691625-9 (Version None)
Quarter: 2011Q3

REPORT INFORMATION
  Report Type: 
  Country: None (occurrence: None)
  Receive Date: 20110818
  Receipt Date: 20110815
  Transmission Date: 20111222
  Serious: Yes (Hospitalization)
  Sender: FDA-Public Use
  Company Number: CA-PFIZER INC-2009283619

PATIENT
  Age: 65 Year
  Sex: Male
  Weight: 88.4 kg

DRUGS (13)
  1. BLINDED NO SUBJECT DRUG [Suspect]
     Indication: PROSTATE CANCER
     Dosage: 37.5 MG, 1X/DAY
     Route: 048
     Dates: start: 20091005, end: 20091012
  2. PLACEBO [Suspect]
     Indication: PROSTATE CANCER
     Dosage: 37.5 MG, 1X/DAY
     Route: 048
     Dates: start: 20091005, end: 20091012
  3. OXAZEPAM [Concomitant]
     Dosage: 30 MG, AS NEEDED
     Route: 048
     Dates: start: 20091001
  4. PREDNISONE [Suspect]
     Indication: PROSTATE CANCER
     Dosage: 5 MG, 2X/DAY
     Route: 048
     Dates: start: 20091005, end: 20091012
  5. RABEPRAZOLE SODIUM [Concomitant]
     Indication: PROPHYLAXIS
     Dosage: 20 MG, 2X/DAY
     Route: 048
     Dates: start: 20060101
  6. FLOMAX [Concomitant]
     Indication: URINARY TRACT DISORDER
     Dosage: 0.4 MG, 1X/DAY
     Route: 048
     Dates: start: 20040914
  7. LUPRON [Concomitant]
     Indication: PROSTATE CANCER
     Dosage: 22.5 MG, EVERY 3 MONTHS
     Route: 030
     Dates: start: 20080301
  8. ASPIRIN [Concomitant]
     Indication: PROPHYLAXIS
     Dosage: 81 MG, 1X/DAY
     Route: 048
     Dates: start: 20080101
  9. MORPHINE SULFATE [Concomitant]
     Indication: BONE PAIN
     Dosage: 15 MG, EVERY 12 HOURS
     Route: 048
     Dates: start: 20090924
  10. OXAZEPAM [Concomitant]
     Indication: SEDATIVE THERAPY
     Dosage: 15 MG, AS NEEDED
     Route: 048
     Dates: start: 20091001
  11. MORPHINE [Concomitant]
     Indication: BONE PAIN
     Dosage: 5 MG, AS NEEDED
     Route: 042
     Dates: start: 20091013
  12. MORPHINE [Concomitant]
     Dosage: 2 MG, AS NEEDED
     Route: 042
  13. SUNITINIB MALATE [Suspect]
     Indication: PROSTATE CANCER
     Dosage: 37.5 MG, 1X/DAY
     Route: 048
     Dates: start: 20091005, end: 20091012

REACTIONS (1)
  - HYPONATRAEMIA [None]
